FAERS Safety Report 6731419-1 (Version None)
Quarter: 2010Q2

REPORT INFORMATION
  Report Type: 
  Country: None (occurrence: None)
  Receive Date: 20100518
  Receipt Date: 20100518
  Transmission Date: 20101027
  Serious: Yes (Hospitalization)
  Sender: FDA-Public Use
  Company Number: None

PATIENT
  Sex: Female
  Weight: 57.6 kg

DRUGS (17)
  1. CYTARABINE [Suspect]
     Dosage: 13670 MG
  2. MYLOTARG [Suspect]
     Dosage: 5 MG
  3. MITOXANTRONE HYDROCHLORIDE [Suspect]
     Dosage: 80 MG
  4. ATIVAN [Concomitant]
  5. CARBOGLU [Concomitant]
  6. DOXYCYCINE [Concomitant]
  7. FLAGYL [Concomitant]
  8. NEUPOGEN [Concomitant]
  9. HYDROMORPHONE HCL [Concomitant]
  10. KETAMINE HCL [Concomitant]
  11. LACTULOSE [Concomitant]
  12. LUPRON [Concomitant]
  13. MEROPENEM [Concomitant]
  14. OVRAL [Concomitant]
  15. SOMATROPIN [Concomitant]
  16. VANCOMYCIN [Concomitant]
  17. VORICONAZOLE [Concomitant]

REACTIONS (7)
  - AMMONIA INCREASED [None]
  - CONFUSIONAL STATE [None]
  - CONTINUOUS HAEMODIAFILTRATION [None]
  - DEPRESSED LEVEL OF CONSCIOUSNESS [None]
  - HAEMODIALYSIS [None]
  - PANCYTOPENIA [None]
  - TRANSAMINASES INCREASED [None]
